FAERS Safety Report 4282989-7 (Version None)
Quarter: 2004Q1

REPORT INFORMATION
  Report Type: 
  Country: None (occurrence: None)
  Receive Date: 20040130
  Receipt Date: 20030130
  Transmission Date: 20041129
  Serious: Yes (Hospitalization)
  Sender: FDA-Public Use
  Company Number: WAES 0301USA03185

PATIENT
  Age: 62 Year
  Sex: Male
  Weight: 79 kg

DRUGS (11)
  1. TYLENOL [Concomitant]
  2. NORVASC [Concomitant]
     Indication: HYPERTENSION
     Route: 048
  3. ASPIRIN [Concomitant]
     Route: 048
  4. DICYCLOMINE HYDROCHLORIDE [Concomitant]
  5. PREVACID [Concomitant]
     Indication: DYSPEPSIA
  6. VIOXX [Suspect]
     Indication: ARTHRITIS
     Route: 048
     Dates: end: 20010701
  7. VIOXX [Suspect]
     Route: 048
     Dates: start: 20010701, end: 20010801
  8. VIOXX [Suspect]
     Indication: BACK PAIN
     Route: 048
     Dates: end: 20010701
  9. VIOXX [Suspect]
     Route: 048
     Dates: start: 20010701, end: 20010801
  10. SAW PALMETTO [Concomitant]
  11. AMBIEN [Concomitant]

REACTIONS (22)
  - ANAEMIA [None]
  - ATELECTASIS [None]
  - BENIGN PROSTATIC HYPERPLASIA [None]
  - BLOOD CHOLESTEROL INCREASED [None]
  - BRADYCARDIA [None]
  - CELLULITIS [None]
  - CHEST WALL PAIN [None]
  - CORONARY ARTERY DISEASE [None]
  - DYSPNOEA [None]
  - ELECTROCARDIOGRAM Q WAVES [None]
  - ERECTILE DYSFUNCTION [None]
  - HYPERGLYCAEMIA [None]
  - HYPERLIPIDAEMIA [None]
  - HYPOKALAEMIA [None]
  - LIBIDO DECREASED [None]
  - MYOCARDIAL INFARCTION [None]
  - OCULAR HYPERTENSION [None]
  - PERICARDITIS [None]
  - PLEURAL EFFUSION [None]
  - POSTOPERATIVE WOUND COMPLICATION [None]
  - PROSTATITIS [None]
  - SLEEP APNOEA SYNDROME [None]
